FAERS Safety Report 6640652-9 (Version None)
Quarter: 2010Q1

REPORT INFORMATION
  Report Type: 
  Country: None (occurrence: None)
  Receive Date: 20100318
  Receipt Date: 20100311
  Transmission Date: 20100710
  Serious: Yes (Other)
  Sender: FDA-Public Use
  Company Number: JP-BAYER-201010954BYL

PATIENT
  Age: 55 Year
  Sex: Male

DRUGS (1)
  1. ASPIRIN [Suspect]
     Indication: DIZZINESS
     Route: 048

REACTIONS (3)
  - ANAPHYLACTIC REACTION [None]
  - URTICARIA [None]
  - VISUAL IMPAIRMENT [None]
